FAERS Safety Report 6746348-7 (Version None)
Quarter: 2010Q2

REPORT INFORMATION
  Report Type: 
  Country: None (occurrence: None)
  Receive Date: 20100528
  Receipt Date: 20100517
  Transmission Date: 20101027
  Serious: Yes (Other)
  Sender: FDA-Public Use
  Company Number: CA-PFIZER INC-2010062062

PATIENT
  Age: 64 Year
  Sex: Female

DRUGS (5)
  1. CHAMPIX [Suspect]
     Dosage: UNK
     Dates: end: 20100516
  2. CELEBREX [Concomitant]
     Dosage: 200 MG, UNK
  3. ACETYLSALICYLIC ACID [Concomitant]
     Dosage: UNK MG, UNK
  4. SPIRIVA [Concomitant]
     Dosage: IN THE MORNING
  5. VITAMINS WITH MINERALS [Concomitant]
     Dosage: UNK

REACTIONS (10)
  - ABDOMINAL PAIN UPPER [None]
  - BACK PAIN [None]
  - CONSTIPATION [None]
  - FACE OEDEMA [None]
  - HEART RATE INCREASED [None]
  - LIMB DISCOMFORT [None]
  - MALAISE [None]
  - MUSCULOSKELETAL CHEST PAIN [None]
  - NAUSEA [None]
  - WITHDRAWAL SYNDROME [None]
